FAERS Safety Report 9613408 (Version 1)
Quarter: 2013Q4

REPORT INFORMATION
  Report Type: Spontaneous
  Country: JP (occurrence: JP)
  Receive Date: 20131010
  Receipt Date: 20131010
  Transmission Date: 20140711
  Serious: Yes (Death, Hospitalization)
  Sender: FDA-Public Use
  Company Number: JP-WATSON-2013-17767

PATIENT
  Age: 7 Year
  Sex: Female
  Weight: 15 kg

DRUGS (4)
  1. LAMOTRIGINE (UNKNOWN) [Suspect]
     Indication: PARTIAL SEIZURES
     Dosage: 25 MG, DAILY
     Route: 065
  2. LAMOTRIGINE (UNKNOWN) [Suspect]
     Dosage: 20 MG, DAILY
     Route: 065
  3. VALPROIC ACID (UNKNOWN) [Suspect]
     Indication: PARTIAL SEIZURES
     Dosage: UNKNOWN
     Route: 065
  4. CLONAZEPAM [Concomitant]
     Indication: PARTIAL SEIZURES
     Dosage: UNKNOWN
     Route: 065

REACTIONS (4)
  - Drug reaction with eosinophilia and systemic symptoms [Fatal]
  - Cardiac failure chronic [Fatal]
  - Myocarditis [Fatal]
  - Thyroid function test abnormal [Fatal]
